FAERS Safety Report 5676190-X (Version None)
Quarter: 2008Q1

REPORT INFORMATION
  Report Type: 
  Country: None (occurrence: None)
  Receive Date: 20080321
  Receipt Date: 20080310
  Transmission Date: 20080703
  Serious: Yes (Hospitalization)
  Sender: FDA-Public Use
  Company Number: US-AMGEN-STX263675

PATIENT
  Sex: Female

DRUGS (13)
  1. ENBREL [Suspect]
     Indication: PSORIASIS
     Route: 058
     Dates: start: 20040606
  2. VITAMIN CAP [Concomitant]
     Route: 065
  3. OXYCONTIN [Concomitant]
     Route: 065
  4. PROZAC [Concomitant]
  5. LOXAPINE [Concomitant]
  6. COGENTIN [Concomitant]
  7. PREVACID [Concomitant]
  8. PERCOCET [Concomitant]
  9. FUROSEMIDE [Concomitant]
  10. CALCIUM [Concomitant]
  11. CLONAZEPAM [Concomitant]
  12. FLOVENT [Concomitant]
  13. DUONEB [Concomitant]

REACTIONS (4)
  - ASTHMA [None]
  - CHRONIC OBSTRUCTIVE PULMONARY DISEASE [None]
  - PSORIASIS [None]
  - RECTAL PROLAPSE [None]
